FAERS Safety Report 8949067 (Version 1)
Quarter: 2012Q4

REPORT INFORMATION
  Report Type: 
  Country: US (occurrence: US)
  Receive Date: 20121206
  Receipt Date: 20121206
  Transmission Date: 20130627
  Serious: No
  Sender: FDA-Public Use
  Company Number: US-PFIZER INC-2012303942

PATIENT
  Sex: Male

DRUGS (5)
  1. IRINOTECAN HCL [Suspect]
     Indication: METASTATIC COLORECTAL CANCER
     Dosage: cyclic
     Route: 042
     Dates: start: 2012, end: 2012
  2. FLUOROURACIL [Suspect]
     Indication: METASTATIC COLORECTAL CANCER
     Dosage: cyclic
     Route: 042
     Dates: start: 2012, end: 2012
  3. ZALTRAP [Suspect]
     Indication: METASTATIC COLORECTAL CANCER
     Dosage: cyclic
     Route: 042
     Dates: start: 2012, end: 2012
  4. LEUCOVORIN [Suspect]
     Indication: METASTATIC COLORECTAL CANCER
     Dosage: cyclic
     Route: 042
     Dates: start: 2012, end: 2012
  5. CAPECITABINE [Concomitant]
     Dosage: UNK

REACTIONS (3)
  - Neutropenia [Unknown]
  - Headache [Recovered/Resolved]
  - Hepatic enzyme increased [Unknown]
